FAERS Safety Report 8601282-2 (Version None)
Quarter: 2012Q3

REPORT INFORMATION
  Report Type: 
  Country: None (occurrence: None)
  Receive Date: 20120817
  Receipt Date: 20120813
  Transmission Date: 20120928
  Serious: Yes (Hospitalization)
  Sender: FDA-Public Use
  Company Number: US-GENZYME-CAMP-1002258

PATIENT
  Sex: Female
  Weight: 68.027 kg

DRUGS (6)
  1. ALEMTUZUMAB [Suspect]
     Indication: MULTIPLE SCLEROSIS
     Dosage: 12 MG, QD
     Route: 042
     Dates: start: 20101208, end: 20101210
  2. ALEMTUZUMAB [Suspect]
     Dosage: 12 MG, QD
     Route: 042
     Dates: start: 20081201, end: 20081205
  3. METHYLPREDNISOLONE [Concomitant]
     Dosage: 1 G, QD
     Dates: start: 20091201, end: 20091203
  4. ALEMTUZUMAB [Suspect]
     Dosage: 12 MG, QD
     Route: 042
     Dates: start: 20091201, end: 20091203
  5. METHYLPREDNISOLONE [Concomitant]
     Indication: PRODUCT USED FOR UNKNOWN INDICATION
     Dosage: 1 G, QD
     Dates: start: 20081201, end: 20081203
  6. METHYLPREDNISOLONE [Concomitant]
     Dosage: 1 G, QD
     Dates: start: 20101208, end: 20101208

REACTIONS (1)
  - MULTIPLE SCLEROSIS RELAPSE [None]
